FAERS Safety Report 16533163 (Version 1)
Quarter: 2019Q3

REPORT INFORMATION
  Report Type: Report from Study
  Country: ES (occurrence: ES)
  Receive Date: 20190705
  Receipt Date: 20190705
  Transmission Date: 20191004
  Serious: Yes (Life-Threatening, Hospitalization)
  Sender: FDA-Public Use
  Company Number: ES-TEVA-2019-ES-1072603

PATIENT
  Age: 84 Year
  Sex: Male

DRUGS (6)
  1. SIMVASTATINA (1023A) [Suspect]
     Active Substance: SIMVASTATIN
     Indication: DYSLIPIDAEMIA
     Route: 048
     Dates: start: 201901, end: 20190312
  2. LANTUS 100 UNIDADES/ML SOLUCION INYECTABLE EN UN VIAL, 1 VIAL DE 10 ML [Concomitant]
     Indication: DIABETES MELLITUS
     Route: 058
     Dates: start: 20190130
  3. JANUMET 50 MG/1000 MG COMPRIMIDOS RECUBIERTOS CON PELICULA,56 COMPRIMI [Concomitant]
     Indication: DIABETES MELLITUS
     Route: 048
     Dates: start: 20170328, end: 20190311
  4. LOSARTAN AND HYDROCHLOROTHIAZIDE [Concomitant]
     Active Substance: HYDROCHLOROTHIAZIDE\LOSARTAN POTASSIUM
     Indication: HYPERTENSION
     Route: 048
     Dates: start: 20160809, end: 20190311
  5. SIMVASTATINA (1023A) [Concomitant]
     Active Substance: SIMVASTATIN
     Indication: DYSLIPIDAEMIA
     Route: 065
     Dates: start: 20160217, end: 201901
  6. OPTOVITE B12 1000 MICROGRAMOS SOLUCION INYECTABLE , 5 AMPOLLAS DE 2 ML [Concomitant]
     Route: 030
     Dates: end: 20190311

REACTIONS (1)
  - Rhabdomyolysis [Recovered/Resolved]

NARRATIVE: CASE EVENT DATE: 20190308
